FAERS Safety Report 8229039 (Version 3)
Quarter: 2016Q3

REPORT INFORMATION
  Report Type: Report from Study
  Country: US (occurrence: US)
  Receive Date: 20111104
  Receipt Date: 20160929
  Transmission Date: 20161109
  Serious: Yes (Hospitalization, Other)
  Sender: FDA-Public Use
  Company Number: US-ROCHE-1005356

PATIENT
  Age: 59 Year
  Sex: Female
  Weight: 104.78 kg

DRUGS (11)
  1. CARBOPLATIN. [Suspect]
     Active Substance: CARBOPLATIN
     Indication: ENDOMETRIAL CANCER
     Dosage: PRIOR RADIOTHERAPY, AUC 5 OVER 30 MIN. ON DAY 1 X6 CYCLES
     Route: 042
     Dates: start: 20110520
  2. BEVACIZUMAB [Suspect]
     Active Substance: BEVACIZUMAB
     Indication: ENDOMETRIAL CANCER
     Dosage: PRIOR RADIOTHERAPY,OVER 30-90 MIN ON DAY 1 (PATIENT CONTINUE TO RECEIVED MAINTENANCE TREATMENT UNTIL
     Route: 042
     Dates: start: 20110520
  3. CARBOPLATIN. [Suspect]
     Active Substance: CARBOPLATIN
     Dosage: NO PRIOR RADIOTHERAPY, AUC 5 OVER 30 MIN. ON DAY 1 X6 CYCLES
     Route: 042
  4. BEVACIZUMAB [Suspect]
     Active Substance: BEVACIZUMAB
     Dosage: NO PRIOR RADIOTHERAPY,OVER 30-90 MIN ON DAY 1 (PATIENT CONTINUE TO RECEIVED MAINTENANCE TREATMENT UN
     Route: 042
  5. ANTIVERT (UNITED STATES) [Concomitant]
     Route: 065
  6. BEVACIZUMAB [Suspect]
     Active Substance: BEVACIZUMAB
     Dosage: PRIOR RADIOTHERAPY, OVER 30-90 MIN ON DAY 1 (STARTING WITH CYCLE 2 FOR THOSE PTS ENTERING POST SURGE
     Route: 042
  7. BEVACIZUMAB [Suspect]
     Active Substance: BEVACIZUMAB
     Dosage: NO PRIOR RADIOTHERAPY, OVER 30-90 MIN ON DAY 1 (STARTING WITH CYCLE 2 FOR THOSE PTS ENTERING POST SU
     Route: 042
  8. COZAAR [Concomitant]
     Active Substance: LOSARTAN POTASSIUM
  9. PACLITAXEL. [Suspect]
     Active Substance: PACLITAXEL
     Indication: ENDOMETRIAL CANCER
     Dosage: PRIOR RADIOTHERAPY, OVER 3 HOURS ON DAY 1 X 6 CYCLES.
     Route: 042
     Dates: start: 20110520
  10. PACLITAXEL. [Suspect]
     Active Substance: PACLITAXEL
     Dosage: PRIOR RADIOTHERAPY, OVER 3 HOURS ON DAY 1 X 6 CYCLES.
     Route: 042
  11. LOPRESSOR [Concomitant]
     Active Substance: METOPROLOL TARTRATE
     Route: 065

REACTIONS (6)
  - Neutrophil count decreased [Recovered/Resolved]
  - Anaemia [Recovered/Resolved]
  - Hypertension [Unknown]
  - Hypokalaemia [Recovered/Resolved]
  - Hypophosphataemia [Recovered/Resolved]
  - White blood cell count decreased [Recovered/Resolved]

NARRATIVE: CASE EVENT DATE: 20110909
